FAERS Safety Report 10590124 (Version 2)
Quarter: 2014Q4

REPORT INFORMATION
  Report Type: Spontaneous
  Country: DE (occurrence: DE)
  Receive Date: 20141118
  Receipt Date: 20141118
  Transmission Date: 20150529
  Serious: Yes (Hospitalization)
  Sender: FDA-Public Use
  Company Number: DE-TEVA-519088GER

PATIENT
  Age: 71 Year
  Sex: Female
  Weight: 74 kg

DRUGS (1)
  1. PENTOXIFYLLIN-RATIOPHARM 400 MG RETARDTABLETTEN [Suspect]
     Active Substance: PENTOXIFYLLINE
     Indication: TINNITUS
     Dosage: 1200 MILLIGRAM DAILY;
     Route: 048
     Dates: start: 20141001, end: 20141002

REACTIONS (6)
  - Flushing [Recovering/Resolving]
  - Hypertension [Recovering/Resolving]
  - Restlessness [Recovering/Resolving]
  - Diarrhoea [Recovering/Resolving]
  - Drug intolerance [None]
  - Palpitations [Recovering/Resolving]

NARRATIVE: CASE EVENT DATE: 20141003
